FAERS Safety Report 8951340 (Version 1)
Quarter: 2012Q4

REPORT INFORMATION
  Report Type: 
  Country: US (occurrence: US)
  Receive Date: 20121207
  Receipt Date: 20121207
  Transmission Date: 20130627
  Serious: No
  Sender: FDA-Public Use
  Company Number: US-TEVA-374520USA

PATIENT
  Sex: Male

DRUGS (4)
  1. NUVIGIL [Suspect]
     Indication: SLEEP APNOEA SYNDROME
     Dosage: 50 Microgram Daily; started 3-4 months ago
     Route: 048
  2. SIMVASTATIN [Concomitant]
     Indication: BLOOD CHOLESTEROL INCREASED
     Dosage: 40 Milligram Daily;
     Route: 048
  3. LISINOPRIL [Concomitant]
     Indication: HYPERTENSION
     Dosage: 10 Milligram Daily;
  4. METFORMIN [Interacting]
     Indication: DIABETES MELLITUS
     Dosage: 1000 Milligram Daily;
     Route: 048
     Dates: start: 20120824

REACTIONS (1)
  - Blood pressure increased [Not Recovered/Not Resolved]
